FAERS Safety Report 7939663-2 (Version None)
Quarter: 2011Q4

REPORT INFORMATION
  Report Type: 
  Country: None (occurrence: None)
  Receive Date: 20111125
  Receipt Date: 20111116
  Transmission Date: 20120403
  Serious: Yes (Other)
  Sender: FDA-Public Use
  Company Number: PHHY2011CZ94728

PATIENT
  Sex: Female

DRUGS (1)
  1. ZOMETA [Suspect]
     Indication: BONE DISORDER
     Dates: start: 20110201

REACTIONS (6)
  - DYSPHAGIA [None]
  - EXPOSED BONE IN JAW [None]
  - OEDEMA [None]
  - PURULENT DISCHARGE [None]
  - OSTEONECROSIS OF JAW [None]
  - ORAL PAIN [None]
